FAERS Safety Report 12522997 (Version 1)
Quarter: 2016Q3

REPORT INFORMATION
  Report Type: Not Available
  Country: ES (occurrence: ES)
  Receive Date: 20160701
  Receipt Date: 20160701
  Transmission Date: 20161109
  Serious: Yes (Life-Threatening, Hospitalization)
  Sender: FDA-Public Use
  Company Number: ES-ANIPHARMA-2016-ES-000008

PATIENT
  Age: 48 Year
  Sex: Female

DRUGS (1)
  1. OXYCODONE (NON-SPECIFIC) [Suspect]
     Active Substance: OXYCODONE
     Dosage: UNKNOWN
     Route: 065

REACTIONS (6)
  - Depression [Recovered/Resolved]
  - Social avoidant behaviour [Recovered/Resolved]
  - Weight decreased [Unknown]
  - Insomnia [Recovered/Resolved]
  - Suicide attempt [Unknown]
  - Paranoid personality disorder [Recovered/Resolved]
